FAERS Safety Report 17882897 (Version 1)
Quarter: 2020Q2

REPORT INFORMATION
  Report Type: Spontaneous
  Country: US (occurrence: US)
  Receive Date: 20200610
  Receipt Date: 20200610
  Transmission Date: 20200714
  Serious: Yes (Other)
  Sender: FDA-Public Use
  Company Number: US-BEH-2020118315

PATIENT
  Age: 43 Year
  Sex: Female

DRUGS (1)
  1. HIZENTRA [Suspect]
     Active Substance: HUMAN IMMUNOGLOBULIN G
     Indication: IMMUNODEFICIENCY COMMON VARIABLE
     Dosage: 16 GRAM, QW
     Route: 058
     Dates: start: 20200313

REACTIONS (10)
  - Seizure [Unknown]
  - Dyspnoea [Unknown]
  - Swelling [Unknown]
  - Dizziness [Unknown]
  - Hyperhidrosis [Unknown]
  - Infusion site nodule [Unknown]
  - Oedema [Unknown]
  - Fatigue [Unknown]
  - Flushing [Unknown]
  - Weight increased [Unknown]

NARRATIVE: CASE EVENT DATE: 2020
